FAERS Safety Report 10744308 (Version 1)
Quarter: 2015Q1

REPORT INFORMATION
  Report Type: Spontaneous
  Country: US (occurrence: US)
  Receive Date: 20150128
  Receipt Date: 20150128
  Transmission Date: 20150721
  Serious: No
  Sender: FDA-Public Use
  Company Number: US-PFIZER INC-2015029943

PATIENT
  Age: 27 Year
  Sex: Male
  Weight: 80 kg

DRUGS (6)
  1. ADDERALL XR [Concomitant]
     Active Substance: AMPHETAMINE ASPARTATE\AMPHETAMINE SULFATE\DEXTROAMPHETAMINE SACCHARATE\DEXTROAMPHETAMINE SULFATE
     Indication: ATTENTION DEFICIT/HYPERACTIVITY DISORDER
     Dosage: 15 MG, ONE CAPSULE BY MOUTH EVERY MORNING
     Route: 048
     Dates: start: 201408
  2. ADDERALL XR [Concomitant]
     Active Substance: AMPHETAMINE ASPARTATE\AMPHETAMINE SULFATE\DEXTROAMPHETAMINE SACCHARATE\DEXTROAMPHETAMINE SULFATE
     Indication: DISTURBANCE IN ATTENTION
  3. LYRICA [Suspect]
     Active Substance: PREGABALIN
     Dosage: TWO 50 MG CAPSULES DAILY (100 MG TOTAL DAILY)
     Dates: start: 20150113
  4. LYRICA [Suspect]
     Active Substance: PREGABALIN
     Dosage: THREE 50 MG CAPSULES DAILY (TOTAL 150 MG)
     Route: 048
     Dates: start: 20150116
  5. LYRICA [Suspect]
     Active Substance: PREGABALIN
     Indication: FIBROMYALGIA
     Dosage: 50 MG, DAILY
     Route: 048
     Dates: start: 201501
  6. FLEXERIL [Concomitant]
     Active Substance: CYCLOBENZAPRINE HYDROCHLORIDE
     Indication: MUSCLE TIGHTNESS
     Dosage: 10 MG, AS NEEDED
     Route: 048
     Dates: start: 201501

REACTIONS (7)
  - Irritability [Unknown]
  - Abdominal distension [Not Recovered/Not Resolved]
  - Aggression [Not Recovered/Not Resolved]
  - Abdominal pain upper [Unknown]
  - Emotional disorder [Not Recovered/Not Resolved]
  - Dry mouth [Not Recovered/Not Resolved]
  - Abdominal distension [Unknown]

NARRATIVE: CASE EVENT DATE: 201501
